FAERS Safety Report 4505286-0 (Version None)
Quarter: 2004Q4

REPORT INFORMATION
  Report Type: 
  Country: None (occurrence: None)
  Receive Date: 20041118
  Receipt Date: 20041118
  Transmission Date: 20050328
  Serious: Yes (Hospitalization)
  Sender: FDA-Public Use
  Company Number: None

PATIENT
  Age: 68 Year
  Sex: Female
  Weight: 72.5755 kg

DRUGS (6)
  1. CARBOPLATIN [Suspect]
     Indication: PERITONEAL CARCINOMA
     Dosage: 640 MG IV
     Route: 042
  2. DEXAMETHASONE [Concomitant]
  3. FAMOTIDINE [Concomitant]
  4. ACETAMINOPHEN [Concomitant]
  5. DIPHENHYDRAMIND [Concomitant]
  6. ONDANSETRON [Concomitant]

REACTIONS (8)
  - ASTHENIA [None]
  - BLOOD PRESSURE DECREASED [None]
  - COMA [None]
  - DISORIENTATION [None]
  - DIZZINESS [None]
  - ERYTHEMA [None]
  - HYPERHIDROSIS [None]
  - INFUSION RELATED REACTION [None]
